FAERS Safety Report 7883549-9 (Version None)
Quarter: 2011Q4

REPORT INFORMATION
  Report Type: 
  Country: None (occurrence: None)
  Receive Date: 20111102
  Receipt Date: 20111018
  Transmission Date: 20120403
  Serious: Yes (Hospitalization, Other)
  Sender: FDA-Public Use
  Company Number: CA-ELI_LILLY_AND_COMPANY-CA201110004481

PATIENT
  Sex: Female

DRUGS (8)
  1. LITHIUM CITRATE [Concomitant]
  2. LAMICTAL [Concomitant]
  3. WELLBUTRIN SR [Concomitant]
  4. ZYPREXA [Suspect]
     Dosage: 10 MG, EACH EVENING
  5. LORAZEPAM [Concomitant]
  6. ZYPREXA [Suspect]
     Indication: BIPOLAR DISORDER
     Dosage: 15 MG, EACH EVENING
     Dates: start: 20040916, end: 20070204
  7. ZYPREXA [Suspect]
     Dosage: 7.5 MG, EACH EVENING
  8. ZYPREXA [Suspect]
     Dosage: 5 MG, EACH EVENING

REACTIONS (24)
  - INTENTIONAL OVERDOSE [None]
  - VULVOVAGINAL BURNING SENSATION [None]
  - LEUKOCYTOSIS [None]
  - SUICIDAL IDEATION [None]
  - TYPE 2 DIABETES MELLITUS [None]
  - POLLAKIURIA [None]
  - BLOOD CHOLESTEROL INCREASED [None]
  - VISION BLURRED [None]
  - DIABETES INSIPIDUS [None]
  - BACK PAIN [None]
  - SLEEP APNOEA SYNDROME [None]
  - HYPERTHERMIA [None]
  - SOMNOLENCE [None]
  - TREMOR [None]
  - TOXICITY TO VARIOUS AGENTS [None]
  - ALTERED STATE OF CONSCIOUSNESS [None]
  - ANXIETY [None]
  - VOMITING [None]
  - POLYDIPSIA [None]
  - LOSS OF LIBIDO [None]
  - BLOOD TRIGLYCERIDES INCREASED [None]
  - WEIGHT INCREASED [None]
  - PAIN IN EXTREMITY [None]
  - IRON DEFICIENCY ANAEMIA [None]
